FAERS Safety Report 7643229-1 (Version None)
Quarter: 2011Q3

REPORT INFORMATION
  Report Type: 
  Country: None (occurrence: None)
  Receive Date: 20110729
  Receipt Date: 20110722
  Transmission Date: 20111222
  Serious: Yes (Hospitalization)
  Sender: FDA-Public Use
  Company Number: US-BIOGENIDEC-2011BI021432

PATIENT
  Age: 79 Year
  Sex: Female
  Weight: 69 kg

DRUGS (14)
  1. TYSABRI [Suspect]
     Indication: MULTIPLE SCLEROSIS
     Route: 042
     Dates: start: 20110425, end: 20110523
  2. LORTAB [Concomitant]
  3. INSULIN [Concomitant]
  4. ASPIRIN [Concomitant]
  5. MACROBID [Concomitant]
  6. LEVAQUIN [Concomitant]
  7. BACLOFEN [Concomitant]
  8. NITROGLYCERIN [Concomitant]
  9. TOPROL-XL [Concomitant]
  10. PHENERGAN HCL [Concomitant]
  11. XANAX [Concomitant]
  12. SYNTHROID [Concomitant]
  13. AMPLODIDPINE [Concomitant]
  14. FLEXERIL [Concomitant]

REACTIONS (2)
  - ESCHERICHIA URINARY TRACT INFECTION [None]
  - MULTIPLE SCLEROSIS RELAPSE [None]
